FAERS Safety Report 5862398-7 (Version None)
Quarter: 2008Q3

REPORT INFORMATION
  Report Type: 
  Country: None (occurrence: None)
  Receive Date: 20080828
  Receipt Date: 20080808
  Transmission Date: 20090109
  Serious: No
  Sender: FDA-Public Use
  Company Number: CA-ASTRAZENECA-2008UW16002

PATIENT
  Sex: Female
  Weight: 42 kg

DRUGS (2)
  1. NEXIUM [Suspect]
     Route: 048
     Dates: start: 20060101
  2. NEXIUM [Suspect]
     Route: 048

REACTIONS (2)
  - ALOPECIA [None]
  - WEIGHT DECREASED [None]
